FAERS Safety Report 12526904 (Version 4)
Quarter: 2016Q3

REPORT INFORMATION
  Report Type: Report from Study
  Country: CO (occurrence: CO)
  Receive Date: 20160705
  Receipt Date: 20160817
  Transmission Date: 20161109
  Serious: Yes (Hospitalization, Other)
  Sender: FDA-Public Use
  Company Number: PHHY2016CO009258

PATIENT
  Age: 27 Year
  Sex: Female
  Weight: 95.2 kg

DRUGS (3)
  1. SIGNIFOR [Suspect]
     Active Substance: PASIREOTIDE
     Indication: CUSHING^S SYNDROME
     Dosage: 0.9 MG, Q12H
     Route: 058
     Dates: start: 20140421, end: 20160717
  2. METFORMIN [Concomitant]
     Active Substance: METFORMIN HYDROCHLORIDE
     Indication: TYPE 2 DIABETES MELLITUS
     Dosage: 850 MG, TID
     Route: 048
     Dates: start: 20140421
  3. STRAMONIUM [Concomitant]
     Indication: PRODUCT USED FOR UNKNOWN INDICATION
     Dosage: 10 GTT, TID
     Route: 048

REACTIONS (9)
  - Cerebrovascular accident [Unknown]
  - Blood pressure increased [Unknown]
  - Glucose tolerance increased [Unknown]
  - Headache [Recovered/Resolved]
  - Drug effect decreased [Unknown]
  - Blood corticotrophin abnormal [Unknown]
  - Seizure [Unknown]
  - Hormone level abnormal [Unknown]
  - Tongue biting [Unknown]

NARRATIVE: CASE EVENT DATE: 20160625
